FAERS Safety Report 25415341 (Version 4)
Quarter: 2025Q2

REPORT INFORMATION
  Report Type: Report from Study
  Country: ES (occurrence: ES)
  Receive Date: 20250610
  Receipt Date: 20250626
  Transmission Date: 20250716
  Serious: Yes (Death, Other)
  Sender: ABBVIE
  Company Number: ES-ABBVIE-6312538

PATIENT
  Age: 79 Year
  Sex: Male
  Weight: 60 kg

DRUGS (2)
  1. CARBIDOPA\LEVODOPA [Suspect]
     Active Substance: CARBIDOPA\LEVODOPA
     Indication: Parkinson^s disease
     Route: 050
     Dates: start: 20211028
  2. CARBIDOPA\LEVODOPA [Suspect]
     Active Substance: CARBIDOPA\LEVODOPA

REACTIONS (9)
  - Parkinson^s disease [Fatal]
  - Dysphagia [Not Recovered/Not Resolved]
  - Movement disorder [Not Recovered/Not Resolved]
  - Drug ineffective [Unknown]
  - Paralysis [Not Recovered/Not Resolved]
  - Posture abnormal [Unknown]
  - Terminal state [Not Recovered/Not Resolved]
  - Bedridden [Unknown]
  - Hypophagia [Unknown]

NARRATIVE: CASE EVENT DATE: 20250530
